FAERS Safety Report 5695276-7 (Version None)
Quarter: 2008Q2

REPORT INFORMATION
  Report Type: 
  Country: None (occurrence: None)
  Receive Date: 20080404
  Receipt Date: 20080402
  Transmission Date: 20081010
  Serious: Yes (Hospitalization)
  Sender: FDA-Public Use
  Company Number: TR-BOEHRINGER INGELHEIM GMBH, GERMANY-2008-DE-01959GD

PATIENT
  Age: 24 Year
  Sex: Female

DRUGS (6)
  1. SERTRALINE [Suspect]
     Indication: MAJOR DEPRESSION
  2. SERTRALINE [Suspect]
  3. ALPRAZOLAM [Concomitant]
     Indication: MAJOR DEPRESSION
  4. ALPRAZOLAM [Concomitant]
  5. METHOTREXATE [Concomitant]
     Indication: RHEUMATOID ARTHRITIS
     Dosage: 10 MG ONCE WEEKLY
  6. PREDNISOLONE [Concomitant]
     Indication: RHEUMATOID ARTHRITIS

REACTIONS (1)
  - PUPILS UNEQUAL [None]
